FAERS Safety Report 6043459-9 (Version None)
Quarter: 2009Q1

REPORT INFORMATION
  Report Type: 
  Country: None (occurrence: None)
  Receive Date: 20090114
  Receipt Date: 20090114
  Transmission Date: 20090719
  Serious: No
  Sender: FDA-Public Use
  Company Number: None

PATIENT

DRUGS (1)
  1. MIRAPEX [Suspect]

REACTIONS (4)
  - ABNORMAL BEHAVIOUR [None]
  - COMPULSIVE SHOPPING [None]
  - IMPAIRED WORK ABILITY [None]
  - OBSESSIVE-COMPULSIVE DISORDER [None]
